FAERS Safety Report 7529444-6 (Version None)
Quarter: 2011Q2

REPORT INFORMATION
  Report Type: 
  Country: None (occurrence: None)
  Receive Date: 20110607
  Receipt Date: 20050512
  Transmission Date: 20111010
  Serious: Yes (Life-Threatening, Hospitalization)
  Sender: FDA-Public Use
  Company Number: PHNR2005AU00774

PATIENT
  Sex: Male

DRUGS (11)
  1. FERROUS SULFATE TAB [Concomitant]
  2. CLONAZEPAM [Concomitant]
     Dosage: 0.5 MG, BID
  3. FOLATE [Concomitant]
  4. LAMOTRIGINE [Concomitant]
     Dosage: 50 MG, BID
  5. IBUPROFEN [Concomitant]
     Dosage: 400 MG, TID
  6. CLOZARIL [Suspect]
     Indication: SCHIZOPHRENIA
     Dosage: 12.5 - 575 MG
     Route: 048
     Dates: start: 20040428, end: 20050421
  7. HALOPERIDOL [Concomitant]
     Dosage: 5 MG, TID
  8. PANTOPRAZOLE [Concomitant]
     Dosage: 40 MG, QD
  9. BENZTROPINE MESYLATE [Concomitant]
     Dosage: 1 MG, BID
  10. TRANSDERM-NITRO [Concomitant]
     Dosage: 25 MG, QD
  11. PRAVASTATIN [Concomitant]
     Dosage: 20 MG, QD

REACTIONS (15)
  - ANGINA UNSTABLE [None]
  - C-REACTIVE PROTEIN INCREASED [None]
  - PERICARDIAL EFFUSION [None]
  - PYREXIA [None]
  - WHITE BLOOD CELL COUNT INCREASED [None]
  - NEUTROPHIL COUNT INCREASED [None]
  - DELUSIONAL PERCEPTION [None]
  - ELECTROCARDIOGRAM ST SEGMENT ELEVATION [None]
  - VIRAL PERICARDITIS [None]
  - BLOOD ALKALINE PHOSPHATASE INCREASED [None]
  - CHEST PAIN [None]
  - BLOOD TRIGLYCERIDES INCREASED [None]
  - BLOOD CREATINE PHOSPHOKINASE INCREASED [None]
  - RED BLOOD CELL COUNT DECREASED [None]
  - PERICARDIAL RUB [None]
